FAERS Safety Report 7375409-7 (Version None)
Quarter: 2011Q1

REPORT INFORMATION
  Report Type: 
  Country: None (occurrence: None)
  Receive Date: 20110325
  Receipt Date: 20091102
  Transmission Date: 20110831
  Serious: Yes (Other)
  Sender: FDA-Public Use
  Company Number: PHHY2009DE67655

PATIENT
  Sex: Female

DRUGS (1)
  1. EXTAVIA [Suspect]
     Indication: MULTIPLE SCLEROSIS
     Route: 058
     Dates: start: 20090819

REACTIONS (4)
  - DIZZINESS [None]
  - FEELING COLD [None]
  - UPPER LIMB FRACTURE [None]
  - INFLUENZA LIKE ILLNESS [None]
